FAERS Safety Report 20822521 (Version 1)
Quarter: 2022Q2

REPORT INFORMATION
  Report Type: Spontaneous
  Country: US (occurrence: US)
  Receive Date: 20220512
  Receipt Date: 20220512
  Transmission Date: 20220721
  Serious: Yes (Other)
  Sender: FDA-Public Use
  Company Number: US-TEVA-2022-US-2034278

PATIENT
  Age: 73 Year
  Sex: Male
  Weight: 93.44 kg

DRUGS (1)
  1. ALBUTEROL SULFATE [Suspect]
     Active Substance: ALBUTEROL SULFATE
     Indication: Emphysema
     Dosage: 90 MICROGRAM DAILY; 2 HITS IN THE MORNING
     Route: 065
     Dates: start: 2015

REACTIONS (5)
  - Atrial fibrillation [Unknown]
  - Adverse event [Unknown]
  - Feeling abnormal [Unknown]
  - Heart rate decreased [Unknown]
  - Treatment noncompliance [Unknown]
